FAERS Safety Report 14859175 (Version 2)
Quarter: 2019Q1

REPORT INFORMATION
  Report Type: Spontaneous
  Country: US (occurrence: US)
  Receive Date: 20180508
  Receipt Date: 20190306
  Transmission Date: 20190417
  Serious: No
  Sender: FDA-Public Use
  Company Number: US-ALLERGAN-1809631US

PATIENT
  Age: 21 Year
  Sex: Female
  Weight: 49.89 kg

DRUGS (2)
  1. LOESTRIN FE 1/20 [Suspect]
     Active Substance: ETHINYL ESTRADIOL\NORETHINDRONE ACETATE
     Indication: CONTRACEPTION
     Dosage: 25 MG, QD
     Route: 048
     Dates: start: 201802
  2. LOESTRIN FE 1/20 [Suspect]
     Active Substance: ETHINYL ESTRADIOL\NORETHINDRONE ACETATE
     Indication: DYSMENORRHOEA

REACTIONS (3)
  - Abdominal pain lower [Recovering/Resolving]
  - Off label use [Unknown]
  - Uterine haemorrhage [Not Recovered/Not Resolved]

NARRATIVE: CASE EVENT DATE: 20180215
